FAERS Safety Report 5688063-7 (Version None)
Quarter: 2008Q1

REPORT INFORMATION
  Report Type: 
  Country: None (occurrence: None)
  Receive Date: 20080327
  Receipt Date: 20080318
  Transmission Date: 20080703
  Serious: Yes (Hospitalization)
  Sender: FDA-Public Use
  Company Number: 2008BI007647

PATIENT
  Age: 58 Year
  Sex: Female

DRUGS (1)
  1. AVONEX [Suspect]
     Indication: MULTIPLE SCLEROSIS
     Dosage: 30 UG;QW;IM
     Route: 030
     Dates: start: 20061004

REACTIONS (5)
  - CYSTITIS [None]
  - DEHYDRATION [None]
  - FOOD POISONING [None]
  - MUSCLE RIGIDITY [None]
  - URETHRAL DISORDER [None]
